FAERS Safety Report 7592876-4 (Version None)
Quarter: 2011Q3

REPORT INFORMATION
  Report Type: 
  Country: None (occurrence: None)
  Receive Date: 20110706
  Receipt Date: 20110701
  Transmission Date: 20111222
  Serious: Yes (Other)
  Sender: FDA-Public Use
  Company Number: RO-ROCHE-686187

PATIENT
  Sex: Female
  Weight: 80 kg

DRUGS (6)
  1. RIBAVIRIN [Suspect]
     Indication: HEPATITIS C
     Route: 048
     Dates: start: 20091218
  2. ARGININE [Concomitant]
     Dates: start: 20100201, end: 20100208
  3. URSO FALK [Concomitant]
     Dates: start: 20100108
  4. SARGENOR [Concomitant]
     Dates: start: 20100108
  5. LAGOSA [Concomitant]
     Dates: start: 20100208
  6. PEGINTERFERON ALFA-2A [Suspect]
     Indication: HEPATITIS C
     Route: 058
     Dates: start: 20091218, end: 20101029

REACTIONS (2)
  - HYPOTHYROIDISM [None]
  - CYTOLYTIC HEPATITIS [None]
